FAERS Safety Report 6559531-0 (Version None)
Quarter: 2010Q1

REPORT INFORMATION
  Report Type: 
  Country: None (occurrence: None)
  Receive Date: 20100129
  Receipt Date: 20090904
  Transmission Date: 20100710
  Serious: No
  Sender: FDA-Public Use
  Company Number: US-ABBOTT-09P-163-0595554-00

PATIENT
  Sex: Male
  Weight: 64.014 kg

DRUGS (3)
  1. HUMIRA [Suspect]
     Indication: CROHN'S DISEASE
     Dates: start: 20070404, end: 20090101
  2. HUMIRA [Suspect]
     Dates: start: 20090917
  3. CIMZIA PRE-FILLED SYRINGE [Concomitant]
     Indication: CROHN'S DISEASE
     Dates: start: 20080101, end: 20090101

REACTIONS (1)
  - URTICARIA [None]
